FAERS Safety Report 8474285 (Version 2)
Quarter: 2013Q2

REPORT INFORMATION
  Report Type: Spontaneous
  Country: US (occurrence: None)
  Receive Date: 20120227
  Receipt Date: 20120525
  Transmission Date: 20140414
  Serious: No
  Sender: FDA-Public Use
  Company Number: 343536

PATIENT
  Sex: Male

DRUGS (3)
  1. VICTOZA [Suspect]
     Indication: TYPE 2 DIABETES MELLITUS
     Route: 058
  2. METFORMIN [Concomitant]
  3. GLIMEPIRIDE (GLIMEPIRIDE) [Concomitant]

REACTIONS (3)
  - ABDOMINAL PAIN UPPER [None]
  - BLOOD GLUCOSE INCREASED [None]
  - DRUG DOSE OMISSION [None]
